FAERS Safety Report 14974781 (Version 2)
Quarter: 2018Q2

REPORT INFORMATION
  Report Type: Spontaneous
  Country: GB (occurrence: GB)
  Receive Date: 20180605
  Receipt Date: 20180613
  Transmission Date: 20180711
  Serious: Yes (Other)
  Sender: FDA-Public Use
  Company Number: GB-PFIZER INC-2018226011

PATIENT
  Sex: Male

DRUGS (1)
  1. DALACIN [Suspect]
     Active Substance: CLINDAMYCIN
     Dosage: UNK

REACTIONS (2)
  - Diarrhoea [Unknown]
  - Cerebrovascular accident [Unknown]
